FAERS Safety Report 5748458-X (Version None)
Quarter: 2008Q2

REPORT INFORMATION
  Report Type: 
  Country: None (occurrence: None)
  Receive Date: 20080523
  Receipt Date: 20080513
  Transmission Date: 20081010
  Serious: Yes (Hospitalization)
  Sender: FDA-Public Use
  Company Number: FR-PFIZER INC-2008041353

PATIENT
  Age: 36 Year
  Sex: Female

DRUGS (1)
  1. LOGIFLOX [Suspect]
     Indication: URINARY TRACT INFECTION
     Dosage: DAILY DOSE:400MG
     Route: 048
     Dates: start: 20080301, end: 20080301

REACTIONS (3)
  - ABDOMINAL PAIN [None]
  - ENTEROCOLITIS HAEMORRHAGIC [None]
  - RECTAL HAEMORRHAGE [None]
